FAERS Safety Report 5505255-8 (Version None)
Quarter: 2007Q4

REPORT INFORMATION
  Report Type: 
  Country: None (occurrence: None)
  Receive Date: 20071102
  Receipt Date: 20071024
  Transmission Date: 20080405
  Serious: Yes (Other)
  Sender: FDA-Public Use
  Company Number: JP-JNJFOC-20070801267

PATIENT
  Sex: Female

DRUGS (4)
  1. DUROTEP [Suspect]
     Dosage: HALF PATCH AREA COVERED
     Route: 062
  2. DUROTEP [Suspect]
     Indication: CANCER PAIN
     Route: 062
  3. BISOLVON [Concomitant]
     Indication: PRODUCTIVE COUGH
     Route: 055
  4. ISOTONIC SODIUM CHLORIDE [Concomitant]
     Route: 042

REACTIONS (2)
  - DELIRIUM [None]
  - WRONG TECHNIQUE IN DRUG USAGE PROCESS [None]
